FAERS Safety Report 13062534 (Version 1)
Quarter: 2016Q4

REPORT INFORMATION
  Report Type: Spontaneous
  Country: US (occurrence: US)
  Receive Date: 20161226
  Receipt Date: 20161226
  Transmission Date: 20170207
  Serious: Yes (Hospitalization)
  Sender: FDA-Public Use
  Company Number: US-LUNDBECK-DKLU2024346

PATIENT
  Age: 70 Year
  Sex: Male

DRUGS (1)
  1. NORTHERA [Suspect]
     Active Substance: DROXIDOPA
     Indication: AUTONOMIC NEUROPATHY
     Route: 048
     Dates: start: 20161208

REACTIONS (2)
  - Fall [Recovered/Resolved with Sequelae]
  - Hip fracture [Recovering/Resolving]

NARRATIVE: CASE EVENT DATE: 20161217
